FAERS Safety Report 7262108-5 (Version None)
Quarter: 2011Q1

REPORT INFORMATION
  Report Type: 
  Country: None (occurrence: None)
  Receive Date: 20110130
  Receipt Date: 20101130
  Transmission Date: 20110831
  Serious: No
  Sender: FDA-Public Use
  Company Number: US-ABBOTT-10P-163-0689095-00

PATIENT
  Sex: Female
  Weight: 45.854 kg

DRUGS (2)
  1. RELAFEN [Concomitant]
     Indication: PAIN
  2. HUMIRA [Suspect]
     Indication: ANKYLOSING SPONDYLITIS
     Dates: start: 20101001

REACTIONS (5)
  - DECREASED APPETITE [None]
  - PAIN [None]
  - WEIGHT DECREASED [None]
  - PYREXIA [None]
  - DRUG INEFFECTIVE [None]
